APPROVED DRUG PRODUCT: MYCOPHENOLATE MOFETIL HYDROCHLORIDE
Active Ingredient: MYCOPHENOLATE MOFETIL HYDROCHLORIDE
Strength: 500MG/VIAL
Dosage Form/Route: INJECTABLE;INJECTION
Application: A211374 | Product #001
Applicant: AMNEAL EU LTD
Approved: Mar 5, 2021 | RLD: No | RS: No | Type: DISCN